FAERS Safety Report 7281555-9 (Version None)
Quarter: 2011Q1

REPORT INFORMATION
  Report Type: 
  Country: None (occurrence: None)
  Receive Date: 20110208
  Receipt Date: 20110127
  Transmission Date: 20110831
  Serious: Yes (Hospitalization)
  Sender: FDA-Public Use
  Company Number: PHHY2011US07498

PATIENT
  Age: 55 Year
  Sex: Female

DRUGS (11)
  1. PRILOSEC [Concomitant]
  2. RECLAST [Suspect]
     Dosage: 5 MG
     Dates: start: 20110107
  3. MECLIZINE [Concomitant]
  4. OXYCODONE HCL [Concomitant]
     Indication: PAIN
     Dosage: 5 TO 10 MG EVERY FOUR HOURS
  5. VITAMIN D [Concomitant]
     Dosage: 4000 IU DAILY
  6. NEURONTIN [Concomitant]
     Dosage: 300 MG, TID
     Route: 048
  7. SIMVASTATIN [Concomitant]
     Dosage: 40 MG AT BEDTIME
  8. ATIVAN [Concomitant]
     Indication: INSOMNIA
     Dosage: 1 MG
     Route: 048
  9. ASPIRIN [Concomitant]
     Dosage: 81 MG DAILY
  10. PHENERGAN HCL [Concomitant]
  11. SYNTHROID [Concomitant]
     Dosage: 175 MG DAILY

REACTIONS (20)
  - INTERVERTEBRAL DISC PROTRUSION [None]
  - PARAESTHESIA [None]
  - DIARRHOEA [None]
  - VOMITING [None]
  - DYSPNOEA [None]
  - ATRIAL FIBRILLATION [None]
  - BRAIN OEDEMA [None]
  - DEHYDRATION [None]
  - FEELING ABNORMAL [None]
  - PAIN [None]
  - CEREBROVASCULAR ACCIDENT [None]
  - BLOOD PRESSURE INCREASED [None]
  - NAUSEA [None]
  - CONSTIPATION [None]
  - NECK PAIN [None]
  - CEREBELLAR HAEMORRHAGE [None]
  - ARTHRALGIA [None]
  - BACK PAIN [None]
  - MUSCULOSKELETAL STIFFNESS [None]
  - HEADACHE [None]
